FAERS Safety Report 5402464-3 (Version None)
Quarter: 2007Q3

REPORT INFORMATION
  Report Type: 
  Country: None (occurrence: None)
  Receive Date: 20070801
  Receipt Date: 20060724
  Transmission Date: 20080115
  Serious: No
  Sender: FDA-Public Use
  Company Number: A0609522A

PATIENT
  Age: 50 Year
  Sex: Female

DRUGS (4)
  1. IMITREX [Suspect]
     Indication: MIGRAINE
     Dosage: 100MG VARIABLE DOSE
     Route: 048
     Dates: start: 20060109
  2. LOTREL [Concomitant]
  3. ZYRTEC-D [Concomitant]
  4. LEVLEN 28 [Concomitant]

REACTIONS (3)
  - CHEST DISCOMFORT [None]
  - MIGRAINE [None]
  - THROAT TIGHTNESS [None]
